FAERS Safety Report 7674579-0 (Version None)
Quarter: 2011Q3

REPORT INFORMATION
  Report Type: 
  Country: None (occurrence: None)
  Receive Date: 20110810
  Receipt Date: 20110802
  Transmission Date: 20111222
  Serious: Yes (Other)
  Sender: FDA-Public Use
  Company Number: PHHY2011DE71161

PATIENT
  Sex: Female

DRUGS (2)
  1. ZOLEDRONIC ACID [Suspect]
     Indication: MULTIPLE MYELOMA
     Dosage: UNK UKN, UNK
     Route: 042
  2. PAMIDRONATE DISODIUM [Suspect]
     Indication: MULTIPLE MYELOMA
     Dosage: UNK UKN, UNK
     Route: 042

REACTIONS (1)
  - OSTEONECROSIS OF JAW [None]
